FAERS Safety Report 9542212 (Version 4)
Quarter: 2014Q2

REPORT INFORMATION
  Report Type: Spontaneous
  Country: US (occurrence: None)
  Receive Date: 20130918
  Receipt Date: 20140619
  Transmission Date: 20141212
  Serious: No
  Sender: FDA-Public Use
  Company Number: 2013CT000054

PATIENT
  Age: 37 Year
  Sex: Female
  Weight: 63.5 kg

DRUGS (5)
  1. KORLYM [Suspect]
     Indication: CUSHING^S SYNDROME
     Route: 048
     Dates: start: 201306, end: 20130624
  2. SPIRONOLACTONE [Suspect]
     Dates: start: 20140410, end: 201405
  3. MULTI-VITAMIN [Concomitant]
  4. FLUTAMIDE [Concomitant]
  5. EPLERENONE [Suspect]

REACTIONS (29)
  - Urticaria [None]
  - Constipation [None]
  - Nausea [None]
  - Vaginal haemorrhage [None]
  - Menstruation irregular [None]
  - Urticaria [None]
  - Rash [None]
  - Drug hypersensitivity [None]
  - Drug ineffective [None]
  - Blood cortisol increased [None]
  - Fatigue [None]
  - Feeling abnormal [None]
  - Irritability [None]
  - Muscular weakness [None]
  - Skin atrophy [None]
  - Skin ulcer [None]
  - Contusion [None]
  - Hirsutism [None]
  - Alopecia [None]
  - Thirst [None]
  - Polyuria [None]
  - Weight increased [None]
  - Weight decreased [None]
  - Insomnia [None]
  - Restlessness [None]
  - Skin fragility [None]
  - Impaired healing [None]
  - Pruritus generalised [None]
  - Generalised erythema [None]
